FAERS Safety Report 6570876-0 (Version None)
Quarter: 2010Q1

REPORT INFORMATION
  Report Type: 
  Country: None (occurrence: None)
  Receive Date: 20100204
  Receipt Date: 20100120
  Transmission Date: 20100710
  Serious: Yes (Other)
  Sender: FDA-Public Use
  Company Number: DE-B.I. PHARMACEUTICALS,INC./RIDGEFIELD-2010-DE-00315DE

PATIENT
  Age: 80 Year
  Sex: Male

DRUGS (1)
  1. SIFROL RETARDTABLETS [Suspect]
     Dosage: 3.15 MG
     Route: 048
     Dates: start: 20091119

REACTIONS (4)
  - APATHY [None]
  - CONFUSIONAL STATE [None]
  - DEHYDRATION [None]
  - VOMITING [None]
